FAERS Safety Report 12464989 (Version 2)
Quarter: 2016Q3

REPORT INFORMATION
  Report Type: Spontaneous
  Country: SK (occurrence: SK)
  Receive Date: 20160614
  Receipt Date: 20160713
  Transmission Date: 20161109
  Serious: Yes (Life-Threatening, Hospitalization, Other)
  Sender: FDA-Public Use
  Company Number: SK-JNJFOC-20160606743

PATIENT
  Sex: Male
  Weight: 95 kg

DRUGS (7)
  1. SORTIS [Concomitant]
     Active Substance: ATORVASTATIN
     Route: 065
     Dates: start: 201204
  2. ISOPTIN SR [Concomitant]
     Active Substance: VERAPAMIL HYDROCHLORIDE
     Route: 065
     Dates: start: 201605
  3. ASPIRIN. [Concomitant]
     Active Substance: ASPIRIN
     Route: 065
     Dates: start: 201204
  4. STELARA [Suspect]
     Active Substance: USTEKINUMAB
     Indication: PSORIASIS
     Route: 058
     Dates: start: 20130520, end: 2016
  5. STELARA [Suspect]
     Active Substance: USTEKINUMAB
     Indication: PSORIASIS
     Route: 058
     Dates: start: 20160608
  6. EFIENT [Concomitant]
     Active Substance: PRASUGREL HYDROCHLORIDE
     Route: 065
     Dates: start: 201605
  7. CORONAL [Concomitant]
     Route: 065
     Dates: start: 201204

REACTIONS (1)
  - Myocardial infarction [Unknown]
